FAERS Safety Report 9393301 (Version 1)
Quarter: 2013Q3

REPORT INFORMATION
  Report Type: Spontaneous
  Country: TR (occurrence: TR)
  Receive Date: 20130710
  Receipt Date: 20130710
  Transmission Date: 20140515
  Serious: Yes (Other)
  Sender: FDA-Public Use
  Company Number: TR-MYLANLABS-2013S1014532

PATIENT
  Age: 22 Year
  Sex: Male

DRUGS (4)
  1. METHOTREXATE [Suspect]
     Indication: JUVENILE IDIOPATHIC ARTHRITIS
     Dosage: 2.5MG 1 X 4/WEEKLY
     Route: 065
  2. LEFLUNOMIDE [Suspect]
     Indication: JUVENILE IDIOPATHIC ARTHRITIS
     Dosage: 100MG/20MG 1 X 1, RESPECTIVELY, AND STEP BY STEP
     Route: 065
  3. DEFLAZACORT [Suspect]
     Indication: JUVENILE IDIOPATHIC ARTHRITIS
     Dosage: 30MG 1 X 1
     Route: 065
  4. ADALIMUMAB [Suspect]
     Indication: JUVENILE IDIOPATHIC ARTHRITIS
     Route: 058

REACTIONS (3)
  - Hepatitis B [Recovered/Resolved]
  - Hepatitis B DNA increased [Recovered/Resolved]
  - Alanine aminotransferase increased [Recovered/Resolved]
